FAERS Safety Report 21557848 (Version 1)
Quarter: 2022Q4

REPORT INFORMATION
  Report Type: Spontaneous
  Country: US (occurrence: None)
  Receive Date: 20221103
  Receipt Date: 20221103
  Transmission Date: 20230113
  Serious: Yes (Hospitalization)
  Sender: FDA-Public Use
  Company Number: None

PATIENT
  Age: 54 Year
  Sex: Female

DRUGS (2)
  1. JULUCA [Suspect]
     Active Substance: DOLUTEGRAVIR SODIUM\RILPIVIRINE HYDROCHLORIDE
     Indication: HIV infection
     Dosage: OTHER QUANTITY : 50-25MG;?OTHER FREQUENCY : DAILY WITH DINNER;?
     Route: 048
     Dates: start: 20211109
  2. JULUCA [Suspect]
     Active Substance: DOLUTEGRAVIR SODIUM\RILPIVIRINE HYDROCHLORIDE
     Dosage: OTHER FREQUENCY : DAILY WITH DINNER;?
     Route: 048

REACTIONS (2)
  - Product availability issue [None]
  - Therapy interrupted [None]

NARRATIVE: CASE EVENT DATE: 20221012
